FAERS Safety Report 7733074-0 (Version None)
Quarter: 2011Q3

REPORT INFORMATION
  Report Type: 
  Country: None (occurrence: None)
  Receive Date: 20110907
  Receipt Date: 20110831
  Transmission Date: 20111222
  Serious: Yes (Death, Other)
  Sender: FDA-Public Use
  Company Number: GB-MERCK-1109GBR00011

PATIENT

DRUGS (1)
  1. JANUVIA [Suspect]
     Route: 048

REACTIONS (2)
  - PANCREATIC CARCINOMA [None]
  - SUDDEN DEATH [None]
